FAERS Safety Report 12111016 (Version 1)
Quarter: 2016Q1

REPORT INFORMATION
  Report Type: Spontaneous
  Country: US (occurrence: US)
  Receive Date: 20160224
  Receipt Date: 20160224
  Transmission Date: 20160526
  Serious: No
  Sender: FDA-Public Use
  Company Number: US-TAKEDA-2016MPI001047

PATIENT
  Sex: Male
  Weight: 69.8 kg

DRUGS (1)
  1. VELCADE [Suspect]
     Active Substance: BORTEZOMIB
     Indication: PLASMA CELL MYELOMA
     Dosage: 2.353 MG, UNK
     Route: 058

REACTIONS (2)
  - Injection site irritation [Unknown]
  - Injection site pain [Unknown]
